FAERS Safety Report 5199536-8 (Version None)
Quarter: 2006Q4

REPORT INFORMATION
  Report Type: 
  Country: None (occurrence: None)
  Receive Date: 20061229
  Receipt Date: 20061218
  Transmission Date: 20070319
  Serious: Yes (Hospitalization)
  Sender: FDA-Public Use
  Company Number: 234246

PATIENT
  Age: 62 Year
  Sex: Female

DRUGS (4)
  1. AVASTIN [Suspect]
     Indication: COLON CANCER
     Dosage: 330 MG, Q2W, INTRAVENOUS
     Route: 042
     Dates: start: 20061122
  2. OXALIPLATIN [Suspect]
     Indication: COLON CANCER
     Dosage: 85 MG, Q2W, INTRAVENOUS
     Route: 042
     Dates: start: 20061122
  3. LEUCOVORIN CALCIUM [Suspect]
     Indication: COLON CANCER
     Dosage: Q2W, INTRAVENOUS
     Route: 042
     Dates: start: 20061122
  4. FLUOROURACIL [Suspect]
     Indication: COLON CANCER
     Dosage: 1000 MG, Q2W, INTRAVENOUS, SEE IMAGE
     Route: 042
     Dates: start: 20061122

REACTIONS (2)
  - POST PROCEDURAL COMPLICATION [None]
  - PSOAS ABSCESS [None]
